FAERS Safety Report 16895471 (Version 1)
Quarter: 2019Q4

REPORT INFORMATION
  Report Type: Spontaneous
  Country: FR (occurrence: FR)
  Receive Date: 20191008
  Receipt Date: 20191008
  Transmission Date: 20200122
  Serious: Yes (Life-Threatening)
  Sender: FDA-Public Use
  Company Number: FR-ASTRAZENECA-2019SF40707

PATIENT
  Age: 46 Year
  Sex: Female
  Weight: 54.5 kg

DRUGS (3)
  1. ZOMIG [Suspect]
     Active Substance: ZOLMITRIPTAN
     Indication: MIGRAINE
     Route: 048
     Dates: end: 20190822
  2. MELODIA [Suspect]
     Active Substance: ETHINYL ESTRADIOL\GESTODENE
     Indication: HORMONAL CONTRACEPTION
     Route: 048
     Dates: end: 20190822
  3. RELPAX [Suspect]
     Active Substance: ELETRIPTAN HYDROBROMIDE
     Indication: MIGRAINE
     Route: 048
     Dates: end: 20190822

REACTIONS (1)
  - Carotid artery dissection [Recovering/Resolving]

NARRATIVE: CASE EVENT DATE: 20190822
